FAERS Safety Report 12217935 (Version 1)
Quarter: 2016Q1

REPORT INFORMATION
  Report Type: Report from Study
  Country: US (occurrence: US)
  Receive Date: 20160329
  Receipt Date: 20160329
  Transmission Date: 20160526
  Serious: Yes (Other)
  Sender: FDA-Public Use
  Company Number: US-MDT-ADR-2016-00030

PATIENT
  Age: 60 Year
  Sex: Female

DRUGS (6)
  1. DILAUDID [Suspect]
     Active Substance: HYDROMORPHONE HYDROCHLORIDE
     Route: 048
  2. CLONIDINE. [Suspect]
     Active Substance: CLONIDINE
     Dosage: 115.00 MCG/DAY
     Route: 037
  3. COMPOUNDED BACLOFEN [Suspect]
     Active Substance: BACLOFEN
     Dosage: 201.24 MCG/DAY
     Route: 037
  4. MORPHINE [Suspect]
     Active Substance: MORPHINE
     Dosage: 5.750 MG/DAY
     Route: 037
  5. BUPIVACAINE [Suspect]
     Active Substance: BUPIVACAINE
     Dosage: 17.249 MG/DAY
     Route: 037
  6. HYDROMORPHONE [Suspect]
     Active Substance: HYDROMORPHONE
     Dosage: 1.1990 MG/DAY
     Route: 037

REACTIONS (7)
  - Medical device site haematoma [Recovered/Resolved]
  - Cognitive disorder [Recovered/Resolved]
  - Hypoaesthesia [Recovered/Resolved]
  - Adverse drug reaction [Recovered/Resolved]
  - Mental status changes [Recovered/Resolved]
  - Therapeutic response decreased [Recovered/Resolved]
  - Constipation [Recovered/Resolved]
